FAERS Safety Report 11304284 (Version 1)
Quarter: 2015Q3

REPORT INFORMATION
  Report Type: Spontaneous
  Country: US (occurrence: US)
  Receive Date: 20150723
  Receipt Date: 20150723
  Transmission Date: 20151125
  Serious: No
  Sender: FDA-Public Use
  Company Number: US-JNJFOC-20150623118

PATIENT
  Age: 71 Year
  Sex: Female
  Weight: 56.7 kg

DRUGS (2)
  1. PEPCID AC MAXIMUM STRENGTH [Suspect]
     Active Substance: FAMOTIDINE
     Route: 048
  2. PEPCID AC MAXIMUM STRENGTH [Suspect]
     Active Substance: FAMOTIDINE
     Indication: GASTROOESOPHAGEAL REFLUX DISEASE
     Dosage: AN HOUR BEFORE EATING, A WEEK OR TWO
     Route: 048

REACTIONS (3)
  - Product use issue [Unknown]
  - Product packaging issue [Unknown]
  - Therapeutic response unexpected [Unknown]
